FAERS Safety Report 12088528 (Version 1)
Quarter: 2016Q1

REPORT INFORMATION
  Report Type: Spontaneous
  Country: US (occurrence: None)
  Receive Date: 20160216
  Receipt Date: 20160216
  Transmission Date: 20160526
  Serious: No
  Sender: FDA-Public Use
  Company Number: None

PATIENT
  Age: 55 Year
  Sex: Male

DRUGS (2)
  1. TELMISARTAN. [Suspect]
     Active Substance: TELMISARTAN
  2. LOSARTAN. [Suspect]
     Active Substance: LOSARTAN

REACTIONS (5)
  - Erythema [None]
  - Blood pressure increased [None]
  - Feeling hot [None]
  - Oropharyngeal pain [None]
  - Head discomfort [None]
